FAERS Safety Report 10098681 (Version 2)
Quarter: 2014Q3

REPORT INFORMATION
  Report Type: Report from Study
  Country: BR (occurrence: BR)
  Receive Date: 20140423
  Receipt Date: 20140811
  Transmission Date: 20150326
  Serious: Yes (Death, Hospitalization, Other)
  Sender: FDA-Public Use
  Company Number: BR-BAYER-2014-054386

PATIENT
  Age: 42 Year
  Sex: Male

DRUGS (1)
  1. NEXAVAR [Suspect]
     Active Substance: SORAFENIB
     Indication: HEPATIC CANCER
     Dosage: UNK
     Route: 048

REACTIONS (8)
  - Haematemesis [Recovered/Resolved]
  - Vomiting [Recovered/Resolved]
  - Nausea [Recovered/Resolved]
  - Varices oesophageal [Recovered/Resolved]
  - Anal haemorrhage [Recovered/Resolved]
  - Hepatic cancer stage IV [None]
  - Cardio-respiratory arrest [Fatal]
  - Hepatic cancer [None]

NARRATIVE: CASE EVENT DATE: 20121031
